FAERS Safety Report 14911131 (Version 3)
Quarter: 2018Q3

REPORT INFORMATION
  Report Type: Spontaneous
  Country: PT (occurrence: PT)
  Receive Date: 20180518
  Receipt Date: 20180803
  Transmission Date: 20181010
  Serious: Yes (Other)
  Sender: FDA-Public Use
  Company Number: PT-SUN PHARMACEUTICAL INDUSTRIES LTD-2018RR-171438

PATIENT
  Age: 56 Year
  Sex: Male

DRUGS (1)
  1. LISINOPRIL. [Suspect]
     Active Substance: LISINOPRIL
     Indication: HYPERKALAEMIA
     Dosage: 10 MG, DAILY
     Route: 065

REACTIONS (5)
  - Hyperkalaemia [Unknown]
  - Condition aggravated [Unknown]
  - Renal tubular acidosis [Unknown]
  - Blood potassium increased [Unknown]
  - Acidosis hyperchloraemic [Unknown]
